FAERS Safety Report 10163382 (Version 1)
Quarter: 2014Q2

REPORT INFORMATION
  Report Type: Spontaneous
  Country: US (occurrence: US)
  Receive Date: 20140509
  Receipt Date: 20140509
  Transmission Date: 20141212
  Serious: Yes (Hospitalization)
  Sender: FDA-Public Use
  Company Number: US-TEVA-480092USA

PATIENT
  Age: 38 Year
  Sex: Female

DRUGS (5)
  1. ACTIQ [Suspect]
     Indication: TRIGEMINAL NEURALGIA
     Route: 048
  2. CYMBALTA [Concomitant]
     Indication: TRIGEMINAL NEURALGIA
  3. FENTANYL [Concomitant]
     Indication: TRIGEMINAL NEURALGIA
  4. NEURONTIN [Concomitant]
     Indication: TRIGEMINAL NEURALGIA
  5. TRILEPTAL [Concomitant]
     Indication: TRIGEMINAL NEURALGIA

REACTIONS (2)
  - Abdominal pain [Recovering/Resolving]
  - Off label use [Unknown]
